FAERS Safety Report 9121328 (Version 1)
Quarter: 2013Q1

REPORT INFORMATION
  Report Type: Report from Study
  Country: FR (occurrence: FR)
  Receive Date: 20130225
  Receipt Date: 20130225
  Transmission Date: 20140127
  Serious: Yes (Hospitalization)
  Sender: FDA-Public Use
  Company Number: FR-ROCHE-1185097

PATIENT
  Sex: Male

DRUGS (6)
  1. MYCOPHENOLATE MOFETIL [Suspect]
     Indication: RENAL TRANSPLANT
     Route: 048
     Dates: start: 20121013, end: 20130123
  2. MYCOPHENOLATE MOFETIL [Suspect]
     Route: 048
     Dates: start: 20121013
  3. EVEROLIMUS [Suspect]
     Indication: RENAL TRANSPLANT
     Route: 048
     Dates: start: 20121203
  4. PREDNISOLONE SODIUM METASULFOBENZOATE [Suspect]
     Indication: RENAL TRANSPLANT
     Route: 048
     Dates: start: 20121013
  5. BACTRIM [Concomitant]
  6. ROVALCYTE [Concomitant]
     Route: 065
     Dates: start: 20121022, end: 20121026

REACTIONS (2)
  - Leukopenia [Not Recovered/Not Resolved]
  - Transplant rejection [Recovering/Resolving]
